FAERS Safety Report 13430024 (Version 1)
Quarter: 2017Q2

REPORT INFORMATION
  Report Type: Spontaneous
  Country: US (occurrence: US)
  Receive Date: 20170411
  Receipt Date: 20170411
  Transmission Date: 20170830
  Serious: Yes (Life-Threatening, Hospitalization, Disabling)
  Sender: FDA-Public Use
  Company Number: None

PATIENT
  Age: 44 Year
  Sex: Male
  Weight: 56.25 kg

DRUGS (3)
  1. METHYLPENDNISOLONE [Suspect]
     Active Substance: METHYLPREDNISOLONE
     Indication: RASH
     Dosage: ?          QUANTITY:21 TABLET(S);OTHER FREQUENCY:VARRIES EACH DAY F;?
     Route: 048
     Dates: start: 20161017, end: 20161020
  2. ADVIL [Concomitant]
     Active Substance: IBUPROFEN
  3. FLUCONAZOLE. [Concomitant]
     Active Substance: FLUCONAZOLE

REACTIONS (5)
  - Feeling abnormal [None]
  - Blood pressure increased [None]
  - Hypersomnia [None]
  - Paralysis [None]
  - Cerebrovascular accident [None]

NARRATIVE: CASE EVENT DATE: 20161021
